FAERS Safety Report 5000474-1 (Version None)
Quarter: 2006Q2

REPORT INFORMATION
  Report Type: 
  Country: None (occurrence: None)
  Receive Date: 20060512
  Receipt Date: 20060502
  Transmission Date: 20061013
  Serious: Yes (Hospitalization)
  Sender: FDA-Public Use
  Company Number: US-JNJFOC-20060500683

PATIENT
  Age: 11 Year
  Sex: Female

DRUGS (5)
  1. REMICADE [Suspect]
  2. REMICADE [Suspect]
  3. REMICADE [Suspect]
     Indication: CROHN'S DISEASE
  4. AZATHIOPRINE [Concomitant]
  5. PREDNISONE TAB [Concomitant]
     Dosage: 5 MG EVERY OTHER DAY

REACTIONS (4)
  - ABASIA [None]
  - DYSARTHRIA [None]
  - MUSCULAR WEAKNESS [None]
  - PAIN IN EXTREMITY [None]
